FAERS Safety Report 6436549-X (Version None)
Quarter: 2009Q4

REPORT INFORMATION
  Report Type: 
  Country: None (occurrence: None)
  Receive Date: 20091110
  Receipt Date: 20091110
  Transmission Date: 20100525
  Serious: No
  Sender: FDA-Public Use
  Company Number: None

PATIENT
  Age: 64 Year
  Sex: Male
  Weight: 103.87 kg

DRUGS (1)
  1. FLUNISOLIDE [Suspect]
     Indication: NASAL CONGESTION
     Dosage: 2 PUFF(S) BID NASAL
     Route: 045
     Dates: start: 20081107, end: 20090403

REACTIONS (4)
  - ASTHENIA [None]
  - DIZZINESS [None]
  - DRUG WITHDRAWAL SYNDROME [None]
  - PARAESTHESIA [None]
